FAERS Safety Report 5381614-1 (Version None)
Quarter: 2007Q3

REPORT INFORMATION
  Report Type: 
  Country: None (occurrence: None)
  Receive Date: 20070709
  Receipt Date: 20070628
  Transmission Date: 20080115
  Serious: Yes (Hospitalization, Other)
  Sender: FDA-Public Use
  Company Number: PHFR2007GB02035

PATIENT
  Age: 10 Year
  Sex: Male

DRUGS (3)
  1. DESFERAL [Suspect]
     Indication: THALASSAEMIA BETA
     Route: 058
  2. DESFERAL [Suspect]
     Route: 042
  3. EXJADE [Concomitant]
     Route: 065

REACTIONS (3)
  - SERUM FERRITIN INCREASED [None]
  - THROMBOSIS [None]
  - TREATMENT NONCOMPLIANCE [None]
